FAERS Safety Report 25406604 (Version 1)
Quarter: 2025Q2

REPORT INFORMATION
  Report Type: Spontaneous
  Country: US (occurrence: US)
  Receive Date: 20250606
  Receipt Date: 20250606
  Transmission Date: 20250716
  Serious: Yes (Other)
  Sender: PFIZER
  Company Number: US-PFIZER INC-PV202500067414

PATIENT
  Age: 13 Year
  Sex: Female

DRUGS (4)
  1. MEDROXYPROGESTERONE ACETATE [Suspect]
     Active Substance: MEDROXYPROGESTERONE ACETATE
     Indication: Dysmenorrhoea
  2. MEDROXYPROGESTERONE ACETATE [Suspect]
     Active Substance: MEDROXYPROGESTERONE ACETATE
     Indication: Vulvovaginal pain
  3. NORETHINDRONE ACETATE [Suspect]
     Active Substance: NORETHINDRONE ACETATE
     Indication: Dysmenorrhoea
     Dosage: UNK, DAILY
  4. NORETHINDRONE ACETATE [Suspect]
     Active Substance: NORETHINDRONE ACETATE
     Indication: Vulvovaginal pain

REACTIONS (2)
  - Vaginal haemorrhage [Unknown]
  - Off label use [Unknown]
